FAERS Safety Report 5913391-7 (Version None)
Quarter: 2008Q4

REPORT INFORMATION
  Report Type: 
  Country: None (occurrence: None)
  Receive Date: 20081009
  Receipt Date: 20081003
  Transmission Date: 20090506
  Serious: Yes (Other)
  Sender: FDA-Public Use
  Company Number: PHEH2008US08865

PATIENT

DRUGS (1)
  1. SANDOSTATIN [Suspect]

REACTIONS (1)
  - CARCINOEMBRYONIC ANTIGEN INCREASED [None]
